FAERS Safety Report 22035695 (Version 1)
Quarter: 2023Q1

REPORT INFORMATION
  Report Type: Spontaneous
  Country: US (occurrence: None)
  Receive Date: 20230224
  Receipt Date: 20230224
  Transmission Date: 20230418
  Serious: No
  Sender: FDA-Public Use
  Company Number: US-ROCHE-3293181

PATIENT
  Age: 55 Year
  Sex: Female
  Weight: 47.670 kg

DRUGS (1)
  1. OCREVUS [Suspect]
     Active Substance: OCRELIZUMAB
     Indication: Relapsing-remitting multiple sclerosis
     Dosage: YES. FIRST TWO HALF OCREVUS INFUSIONS END OF /AUG AND /SEP.
     Route: 065

REACTIONS (2)
  - COVID-19 [Recovered/Resolved]
  - Weight decreased [Unknown]
